FAERS Safety Report 8728942 (Version 3)
Quarter: 2014Q3

REPORT INFORMATION
  Report Type: Spontaneous
  Country: US (occurrence: US)
  Receive Date: 20120817
  Receipt Date: 20140808
  Transmission Date: 20150326
  Serious: Yes (Other)
  Sender: FDA-Public Use
  Company Number: US-BRISTOL-MYERS SQUIBB COMPANY-16235822

PATIENT
  Age: 38 Year
  Sex: Female
  Weight: 57 kg

DRUGS (3)
  1. SPRYCEL [Suspect]
     Active Substance: DASATINIB
     Indication: CHRONIC MYELOID LEUKAEMIA
     Dosage: LOT#2A6011B,JAN15,ONCE AT NIGHT
     Route: 048
     Dates: start: 20110416
  2. VITAMIN B12 [Concomitant]
     Active Substance: CYANOCOBALAMIN
     Dosage: VITAMIN B12 SHOT
     Dates: start: 201107
  3. ZYRTEC [Concomitant]
     Active Substance: CETIRIZINE HYDROCHLORIDE

REACTIONS (10)
  - Nasopharyngitis [Unknown]
  - Arthropod sting [Unknown]
  - Gastroenteritis viral [Unknown]
  - Menstruation irregular [Unknown]
  - Bronchitis [Unknown]
  - Platelet count decreased [Unknown]
  - Pain in extremity [Not Recovered/Not Resolved]
  - Haemoglobin decreased [Unknown]
  - Haematocrit decreased [Unknown]
  - Pain [Unknown]

NARRATIVE: CASE EVENT DATE: 2011
